FAERS Safety Report 24082363 (Version 1)
Quarter: 2024Q3

REPORT INFORMATION
  Report Type: Spontaneous
  Country: GR (occurrence: None)
  Receive Date: 20240712
  Receipt Date: 20240712
  Transmission Date: 20241017
  Serious: Yes (Other)
  Sender: ENCUBE ETHICALS
  Company Number: GR-Encube-000808

PATIENT
  Age: 40 Year
  Sex: Male

DRUGS (9)
  1. FLUOROURACIL [Suspect]
     Active Substance: FLUOROURACIL
     Indication: Bleb revision
     Dosage: INJECTION
  2. MOXIFLOXACIN [Suspect]
     Active Substance: MOXIFLOXACIN
     Indication: Corneal erosion
     Dosage: 5 MG/ML EYE DROP
     Route: 061
  3. ATROPINE [Suspect]
     Active Substance: ATROPINE
     Indication: Corneal erosion
     Dosage: EYE DROP
  4. BIMATOPROST [Concomitant]
     Active Substance: BIMATOPROST
     Indication: Intraocular pressure increased
     Dosage: 0.3 MG/ML
     Route: 061
  5. TIMOLOL [Concomitant]
     Active Substance: TIMOLOL
     Indication: Intraocular pressure increased
     Dosage: 5 MG/ML EYE DROPS AT NIGHT
  6. DORZOLAMIDE [Concomitant]
     Active Substance: DORZOLAMIDE
     Indication: Intraocular pressure increased
     Dosage: EYE DROP
  7. ACETAZOLAMIDE [Concomitant]
     Active Substance: ACETAZOLAMIDE
     Indication: Intraocular pressure increased
  8. TETRACAINE [Concomitant]
     Active Substance: TETRACAINE
     Dosage: 0.5% W/V EYE DROPS
  9. FLUOROURACIL [Suspect]
     Active Substance: FLUOROURACIL
     Indication: Bleb revision
     Dosage: 0.4 ML OF 50 MG/ML INJECTION, AFTER SEVEN WEEKS

REACTIONS (7)
  - Anterior chamber inflammation [Recovering/Resolving]
  - Corneal toxicity [Recovered/Resolved]
  - Subretinal fluid [Recovered/Resolved]
  - Off label use [Unknown]
  - Photophobia [Recovering/Resolving]
  - Visual acuity reduced [Recovered/Resolved]
  - Cataract subcapsular [Unknown]
